FAERS Safety Report 7488148-9 (Version None)
Quarter: 2011Q2

REPORT INFORMATION
  Report Type: 
  Country: None (occurrence: None)
  Receive Date: 20110518
  Receipt Date: 20110511
  Transmission Date: 20111010
  Serious: Yes (Death, Hospitalization, Other)
  Sender: FDA-Public Use
  Company Number: JP-ROCHE-755105

PATIENT
  Sex: Female

DRUGS (34)
  1. TOCILIZUMAB [Suspect]
     Indication: CASTLEMAN'S DISEASE
     Route: 041
     Dates: start: 20091216, end: 20100924
  2. TOCILIZUMAB [Suspect]
     Route: 041
     Dates: start: 20110214, end: 20110214
  3. PAXIL [Concomitant]
     Dosage: PERORAL AGENT
     Route: 048
     Dates: start: 20100521, end: 20110214
  4. TOCILIZUMAB [Suspect]
     Route: 041
     Dates: start: 20101021, end: 20110117
  5. PREDNISOLONE [Concomitant]
     Dosage: FORM: PERORAL AGENT
     Route: 048
  6. LASIX [Concomitant]
     Route: 048
     Dates: start: 20100826, end: 20100905
  7. FUNGIZONE [Concomitant]
     Route: 048
     Dates: end: 20110214
  8. LASIX [Concomitant]
     Route: 048
     Dates: start: 20101216, end: 20110215
  9. ALLOPURINOL [Concomitant]
     Dosage: FORM: PERORAL AGENT
     Route: 048
     Dates: end: 20110214
  10. PREDNISOLONE [Concomitant]
     Route: 048
     Dates: start: 20100521, end: 20100730
  11. PREDNISOLONE [Concomitant]
     Route: 048
     Dates: start: 20100731
  12. DIFLUCAN [Concomitant]
     Route: 048
     Dates: start: 20100123
  13. SODIUM BICARBONATE [Concomitant]
     Dosage: FORM: PERORAL AGENT
     Route: 048
  14. LANSOPRAZOLE [Concomitant]
     Dosage: PERORAL AGENT
     Route: 048
     Dates: start: 20100715, end: 20110214
  15. LASIX [Concomitant]
     Route: 048
     Dates: start: 20100806, end: 20100825
  16. LASIX [Concomitant]
     Route: 048
     Dates: start: 20100925, end: 20101124
  17. OMEPRAL [Concomitant]
     Dosage: FORM: ENTERIC CAOTING DRUG
     Route: 048
  18. NORMONAL [Concomitant]
     Route: 048
     Dates: end: 20110214
  19. ASPIRIN [Concomitant]
     Dosage: DOSE INTERVAL UNCERTAINTY, DOSE FORM:PERORAL AGENT
     Route: 048
     Dates: start: 20101128
  20. TOCILIZUMAB [Suspect]
     Route: 041
     Dates: start: 20110124, end: 20110124
  21. TOCILIZUMAB [Suspect]
     Route: 041
     Dates: start: 20110131, end: 20110131
  22. LASIX [Concomitant]
     Route: 048
     Dates: start: 20100906, end: 20100917
  23. BAKTAR [Concomitant]
     Route: 048
     Dates: end: 20110214
  24. PREDNISOLONE [Concomitant]
     Route: 041
     Dates: start: 20101204, end: 20110131
  25. LASIX [Concomitant]
     Dosage: FORM: PERORAL AGENT
     Route: 048
     Dates: end: 20100805
  26. LASIX [Concomitant]
     Route: 048
     Dates: start: 20101125, end: 20101208
  27. BENET [Concomitant]
     Route: 048
  28. TOCILIZUMAB [Suspect]
     Route: 041
     Dates: start: 20110207, end: 20110207
  29. PREDNISOLONE [Concomitant]
     Route: 048
     Dates: end: 20100520
  30. ALKERAN [Concomitant]
     Route: 048
  31. LASIX [Concomitant]
     Route: 048
     Dates: start: 20100918, end: 20100924
  32. LASIX [Concomitant]
     Route: 048
     Dates: start: 20101209, end: 20101215
  33. ANPLAG [Concomitant]
     Dosage: FORM: PERORAL AGENT
     Route: 048
  34. FUROSEMIDE [Concomitant]
     Route: 048
     Dates: start: 20100521

REACTIONS (5)
  - RENAL FAILURE [None]
  - TIBIA FRACTURE [None]
  - HAEMORRHAGE [None]
  - URINARY TRACT INFECTION [None]
  - PNEUMONIA ASPIRATION [None]
